FAERS Safety Report 9056504 (Version 1)
Quarter: 2013Q1

REPORT INFORMATION
  Report Type: Spontaneous
  Country: CA (occurrence: CA)
  Receive Date: 20130204
  Receipt Date: 20130204
  Transmission Date: 20140127
  Serious: Yes (Death, Other)
  Sender: FDA-Public Use
  Company Number: CA-PFIZER INC-2013022446

PATIENT
  Age: 62 Year
  Sex: Female
  Weight: 65 kg

DRUGS (9)
  1. SUTENT [Suspect]
     Indication: RENAL CANCER METASTATIC
     Dosage: 37.5 MG, 1X/DAY
     Route: 048
     Dates: start: 201209
  2. NAPROXEN [Concomitant]
     Indication: PAIN
     Dosage: 500 MG, 2X/DAY AS NEEDED
     Route: 048
  3. PANTOLOC ^NYCOMED^ [Concomitant]
     Indication: GASTROOESOPHAGEAL REFLUX DISEASE
     Dosage: 40 MG, 1X/DAY
     Route: 048
  4. VALACICLOVIR [Concomitant]
     Indication: HERPES SIMPLEX MENINGOENCEPHALITIS
     Dosage: (2 X500) 1000 MG, 2X/DAY
  5. RISEDRONATE [Concomitant]
     Indication: OSTEOPOROSIS
     Dosage: 35 MG, WEEKLY
  6. MORPHINE [Concomitant]
     Indication: PAIN
     Dosage: UNKNOWN DOSE EVERY 4 HOURS AS NEEDED
  7. SERAX [Concomitant]
     Indication: INSOMNIA
     Dosage: 15 MG, 1X/DAY AT BEDTIME
     Route: 048
  8. CALCIUM [Concomitant]
     Dosage: UNK
  9. VITAMIN D [Concomitant]
     Dosage: UNK

REACTIONS (3)
  - Diverticular perforation [Fatal]
  - Peritonitis [Fatal]
  - Candida infection [Unknown]
